FAERS Safety Report 9387766 (Version 1)
Quarter: 2013Q3

REPORT INFORMATION
  Report Type: Spontaneous
  Country: TR (occurrence: None)
  Receive Date: 20130703
  Receipt Date: 20130703
  Transmission Date: 20140515
  Serious: Yes (Other)
  Sender: FDA-Public Use
  Company Number: 2013P1010738

PATIENT
  Age: 49 Year
  Sex: Female

DRUGS (1)
  1. ISOTRETINOIN [Suspect]
     Indication: ICHTHYOSIS

REACTIONS (10)
  - Exostosis [None]
  - Spinal column stenosis [None]
  - Hyperlipidaemia [None]
  - Blood alkaline phosphatase increased [None]
  - Pityriasis rubra pilaris [None]
  - Vitamin D deficiency [None]
  - Clubbing [None]
  - Hyperreflexia [None]
  - Exostosis [None]
  - Joint range of motion decreased [None]
